FAERS Safety Report 15005776 (Version 1)
Quarter: 2018Q2

REPORT INFORMATION
  Report Type: Spontaneous
  Country: US (occurrence: US)
  Receive Date: 20180525
  Receipt Date: 20180525
  Transmission Date: 20180711
  Serious: Yes (Other)
  Sender: FDA-Public Use
  Company Number: None

PATIENT
  Sex: Female

DRUGS (2)
  1. LEVOCETIRIZINE 5MG [Concomitant]
     Active Substance: LEVOCETIRIZINE
  2. COSENTYX [Suspect]
     Active Substance: SECUKINUMAB
     Indication: ANKYLOSING SPONDYLITIS
     Dosage: ?          OTHER FREQUENCY:EVERY WEEK X 5;?
     Route: 058
     Dates: start: 20180403

REACTIONS (2)
  - Therapy cessation [None]
  - Gallbladder operation [None]
